FAERS Safety Report 6054009-5 (Version None)
Quarter: 2009Q1

REPORT INFORMATION
  Report Type: 
  Country: None (occurrence: None)
  Receive Date: 20090127
  Receipt Date: 20090114
  Transmission Date: 20090719
  Serious: Yes (Hospitalization, Other)
  Sender: FDA-Public Use
  Company Number: JP-PFIZER INC-2008159894

PATIENT

DRUGS (4)
  1. PREDNISOLONE STEAGLATE AND PREDNISOLONE [Suspect]
     Indication: MICROSCOPIC POLYANGIITIS
     Dosage: UNK
     Dates: start: 20080701
  2. PREDNISOLONE AND PREDNISOLONE STEAGLATE [Suspect]
     Indication: SYSTEMIC LUPUS ERYTHEMATOSUS
  3. METHYLPREDNISOLONE SODIUM SUCCINATE [Suspect]
     Indication: MICROSCOPIC POLYANGIITIS
     Dosage: UNK
     Route: 042
     Dates: start: 20080701
  4. METHYLPREDNISOLONE SODIUM SUCCINATE [Suspect]
     Indication: SYSTEMIC LUPUS ERYTHEMATOSUS

REACTIONS (2)
  - CYTOMEGALOVIRUS GASTROENTERITIS [None]
  - PSEUDOMEMBRANOUS COLITIS [None]
